FAERS Safety Report 12229768 (Version 1)
Quarter: 2016Q1

REPORT INFORMATION
  Report Type: Spontaneous
  Country: US (occurrence: None)
  Receive Date: 20160331
  Receipt Date: 20160331
  Transmission Date: 20160526
  Serious: Yes (Hospitalization)
  Sender: FDA-Public Use
  Company Number: None

PATIENT
  Age: 60 Year
  Sex: Male
  Weight: 61.7 kg

DRUGS (1)
  1. BEVACIZUMAB (RHUMAB VEGF)` [Suspect]
     Active Substance: BEVACIZUMAB
     Dosage: 765 HZ
     Dates: end: 20151117

REACTIONS (2)
  - Glioblastoma [None]
  - Hyponatraemia [None]

NARRATIVE: CASE EVENT DATE: 20151201
